FAERS Safety Report 21668478 (Version 1)
Quarter: 2022Q4

REPORT INFORMATION
  Report Type: Spontaneous
  Country: CN (occurrence: CN)
  Receive Date: 20221201
  Receipt Date: 20221201
  Transmission Date: 20230113
  Serious: Yes (Hospitalization)
  Sender: FDA-Public Use
  Company Number: CN-PFIZER INC-PV202200111787

PATIENT
  Age: 75 Year
  Sex: Male
  Weight: 65 kg

DRUGS (5)
  1. VFEND [Suspect]
     Active Substance: VORICONAZOLE
     Indication: Aspergillus infection
     Dosage: 0.4 G, 2X/DAY
     Route: 041
     Dates: start: 20221110, end: 20221110
  2. VFEND [Suspect]
     Active Substance: VORICONAZOLE
     Dosage: 0.2 G, 2X/DAY
     Route: 041
     Dates: start: 20221111, end: 20221114
  3. UNIFLEX [Concomitant]
     Indication: Vehicle solution use
     Dosage: 200 ML, 2X/DAY
     Route: 041
     Dates: start: 20221110, end: 20221114
  4. VANCOMYCIN [Concomitant]
     Active Substance: VANCOMYCIN
     Indication: Anti-infective therapy
     Dosage: UNK
     Dates: start: 2022
  5. ERTAPENEM SODIUM [Concomitant]
     Active Substance: ERTAPENEM SODIUM
     Indication: Anti-infective therapy
     Dosage: UNK
     Dates: start: 2022

REACTIONS (4)
  - Hallucination, visual [Recovering/Resolving]
  - Hallucination, auditory [Recovering/Resolving]
  - Disorganised speech [Recovering/Resolving]
  - Off label use [Unknown]

NARRATIVE: CASE EVENT DATE: 20221111
